FAERS Safety Report 26073973 (Version 1)
Quarter: 2025Q4

REPORT INFORMATION
  Report Type: Spontaneous
  Country: US (occurrence: US)
  Receive Date: 20251121
  Receipt Date: 20251121
  Transmission Date: 20260117
  Serious: Yes (Life-Threatening, Hospitalization)
  Sender: MACLEODS
  Company Number: US-MACLEODS PHARMA-MAC2025056457

PATIENT

DRUGS (9)
  1. ARIPIPRAZOLE [Suspect]
     Active Substance: ARIPIPRAZOLE
     Indication: Schizophrenia
     Route: 065
  2. COCAINE [Suspect]
     Active Substance: COCAINE
     Indication: Product used for unknown indication
     Route: 065
  3. AMPHETAMINE [Suspect]
     Active Substance: AMPHETAMINE
     Indication: Product used for unknown indication
     Route: 065
  4. VANCOMYCIN [Concomitant]
     Active Substance: VANCOMYCIN
     Route: 065
  5. CEFTRIAXONE [Concomitant]
     Active Substance: CEFTRIAXONE
     Route: 065
  6. KEFLEX [Concomitant]
     Active Substance: CEPHALEXIN
     Route: 065
  7. KEFLEX [Concomitant]
     Active Substance: CEPHALEXIN
  8. DOXYCYCLINE [Concomitant]
     Active Substance: DOXYCYCLINE
     Route: 065
  9. DOXYCYCLINE [Concomitant]
     Active Substance: DOXYCYCLINE

REACTIONS (17)
  - Kussmaul respiration [Recovering/Resolving]
  - Haemorrhage [Recovering/Resolving]
  - Altered state of consciousness [Recovering/Resolving]
  - Leukocytosis [Recovering/Resolving]
  - Head injury [Recovering/Resolving]
  - Hyperthermia [Recovering/Resolving]
  - Sepsis [Recovering/Resolving]
  - Pyrexia [Recovering/Resolving]
  - Serotonin syndrome [Recovering/Resolving]
  - Muscle rigidity [Recovering/Resolving]
  - Tachycardia [Recovering/Resolving]
  - Neuroleptic malignant syndrome [Recovering/Resolving]
  - Agitation [Recovering/Resolving]
  - Blood creatine phosphokinase increased [Recovering/Resolving]
  - Hyperhidrosis [Recovering/Resolving]
  - Mental status changes [Recovering/Resolving]
  - Tremor [Recovering/Resolving]
